FAERS Safety Report 9342239 (Version 1)
Quarter: 2013Q2

REPORT INFORMATION
  Report Type: Spontaneous
  Country: FR (occurrence: None)
  Receive Date: 20130606
  Receipt Date: 20130606
  Transmission Date: 20140414
  Serious: Yes (Hospitalization)
  Sender: FDA-Public Use
  Company Number: VAL_02552_2013

PATIENT
  Age: 33 Year
  Sex: Female

DRUGS (1)
  1. PARLODEL [Suspect]
     Indication: PRODUCT USED FOR UNKNOWN INDICATION
     Dosage: DF
     Route: 048
     Dates: start: 20121205, end: 20121212

REACTIONS (8)
  - Grand mal convulsion [None]
  - Confusional state [None]
  - Amnesia [None]
  - Hypertension [None]
  - Body temperature increased [None]
  - Psychomotor retardation [None]
  - Disorientation [None]
  - Nuclear magnetic resonance imaging brain abnormal [None]
